FAERS Safety Report 6977948-7 (Version None)
Quarter: 2010Q3

REPORT INFORMATION
  Report Type: 
  Country: None (occurrence: None)
  Receive Date: 20100913
  Receipt Date: 20100901
  Transmission Date: 20110219
  Serious: Yes (Hospitalization, Other)
  Sender: FDA-Public Use
  Company Number: US-PFIZER INC-2010111249

PATIENT
  Sex: Male
  Weight: 104.31 kg

DRUGS (7)
  1. TIKOSYN [Suspect]
     Indication: ATRIAL FIBRILLATION
     Dosage: 500 UG, DAILY
     Route: 048
     Dates: end: 20100822
  2. TIKOSYN [Suspect]
     Indication: ATRIAL FLUTTER
  3. METOPROLOL [Concomitant]
     Indication: CARDIAC DISORDER
     Dosage: 50 MG, 2X/DAY
  4. KLOR-CON [Concomitant]
     Dosage: 20 MEQ, 2X/DAY
  5. MAGNESIUM [Concomitant]
     Dosage: 400 MG, DAILY
  6. WARFARIN [Concomitant]
     Dosage: 5 MG, UNK
  7. LISINOPRIL [Concomitant]
     Dosage: 5 MG, UNK

REACTIONS (2)
  - CONVULSION [None]
  - VOMITING [None]
